FAERS Safety Report 8985879 (Version 1)
Quarter: 2012Q4

REPORT INFORMATION
  Report Type: 
  Country: US (occurrence: US)
  Receive Date: 20121226
  Receipt Date: 20121226
  Transmission Date: 20130627
  Serious: No
  Sender: FDA-Public Use
  Company Number: US-ABBOTT-12P-163-0946768-00

PATIENT
  Sex: Male
  Weight: 74.91 kg

DRUGS (8)
  1. LUPRON DEPOT [Suspect]
     Indication: PROSTATE CANCER
     Route: 030
     Dates: start: 200904, end: 201108
  2. LUPRON DEPOT [Suspect]
     Route: 030
     Dates: start: 201112
  3. PRILOSEC [Concomitant]
     Indication: DYSPEPSIA
  4. DOCUSATE SODIUM W/SENNA [Concomitant]
     Indication: CONSTIPATION
  5. B-12 [Concomitant]
     Indication: VITAMIN SUPPLEMENTATION
  6. IRON [Concomitant]
     Indication: MINERAL SUPPLEMENTATION
  7. TYLENOL [Concomitant]
     Indication: PAIN
  8. CALCIUM [Concomitant]
     Indication: MINERAL SUPPLEMENTATION

REACTIONS (2)
  - Prostatic specific antigen increased [Not Recovered/Not Resolved]
  - Hot flush [Recovering/Resolving]
